FAERS Safety Report 8639313 (Version 3)
Quarter: 2013Q1

REPORT INFORMATION
  Report Type: Spontaneous
  Country: US (occurrence: None)
  Receive Date: 20120614
  Receipt Date: 20121123
  Transmission Date: 20140127
  Serious: Yes (Other)
  Sender: FDA-Public Use
  Company Number: DKLU1081695

PATIENT
  Age: 24 Year
  Sex: Male
  Weight: 87 kg

DRUGS (4)
  1. ONFI [Suspect]
     Indication: LENNOX-GASTAUT SYNDROME
     Dosage: 3 MONTHS AGO
  2. BANZEL (RUFINAMIDE) [Concomitant]
  3. TOPAMAX [Concomitant]
  4. LAMICTAL [Concomitant]

REACTIONS (2)
  - Urinary retention [None]
  - Urinary incontinence [None]
